FAERS Safety Report 25443290 (Version 2)
Quarter: 2025Q3

REPORT INFORMATION
  Report Type: Spontaneous
  Country: US (occurrence: US)
  Receive Date: 20250617
  Receipt Date: 20250916
  Transmission Date: 20251021
  Serious: Yes (Other)
  Sender: BRISTOL-MYERS SQUIBB COMPANY
  Company Number: US-BRISTOL-MYERS SQUIBB COMPANY-2025-084886

PATIENT
  Sex: Male

DRUGS (3)
  1. OPDUALAG [Suspect]
     Active Substance: NIVOLUMAB\RELATLIMAB-RMBW
     Indication: Metastatic malignant melanoma
  2. MEKTOVI [Concomitant]
     Active Substance: BINIMETINIB
     Indication: Metastatic malignant melanoma
  3. BRAFTOVI [Concomitant]
     Active Substance: ENCORAFENIB
     Indication: Metastatic malignant melanoma

REACTIONS (1)
  - Metastatic malignant melanoma [Not Recovered/Not Resolved]
